FAERS Safety Report 4876604-9 (Version None)
Quarter: 2006Q1

REPORT INFORMATION
  Report Type: 
  Country: None (occurrence: None)
  Receive Date: 20060109
  Receipt Date: 20060109
  Transmission Date: 20060701
  Serious: Yes (Other)
  Sender: FDA-Public Use
  Company Number: None

PATIENT
  Age: 43 Year
  Sex: Female
  Weight: 63.5036 kg

DRUGS (3)
  1. ZICAM COLD REMEDY NASAL GEL [Suspect]
     Indication: NASAL CONGESTION
     Dosage: 1 INHALATION EACH NOSTRIL X 1
     Route: 045
     Dates: start: 20051223
  2. ZICAM COLD REMEDY NASAL GEL [Suspect]
     Indication: NASOPHARYNGITIS
     Dosage: 1 INHALATION EACH NOSTRIL X 1
     Route: 045
     Dates: start: 20051223
  3. IBUPROFEN [Concomitant]

REACTIONS (6)
  - AGEUSIA [None]
  - ANOSMIA [None]
  - BURNING SENSATION [None]
  - LACRIMATION INCREASED [None]
  - NASAL DISCOMFORT [None]
  - NASOPHARYNGITIS [None]
